FAERS Safety Report 8553440-3 (Version None)
Quarter: 2012Q3

REPORT INFORMATION
  Report Type: 
  Country: None (occurrence: None)
  Receive Date: 20120731
  Receipt Date: 20120726
  Transmission Date: 20120928
  Serious: Yes (Hospitalization)
  Sender: FDA-Public Use
  Company Number: AU-ROCHE-1093452

PATIENT
  Age: 72 Year
  Sex: Male
  Weight: 83.4 kg

DRUGS (1)
  1. VEMURAFENIB [Suspect]
     Indication: METASTATIC MALIGNANT MELANOMA
     Dosage: LAST DOSE PRIOR TO SAE 16/JAN/2012
     Route: 048
     Dates: start: 20111230, end: 20120118

REACTIONS (1)
  - COGNITIVE DISORDER [None]
